FAERS Safety Report 8213373-9 (Version None)
Quarter: 2012Q1

REPORT INFORMATION
  Report Type: 
  Country: None (occurrence: None)
  Receive Date: 20120315
  Receipt Date: 20120305
  Transmission Date: 20120608
  Serious: No
  Sender: FDA-Public Use
  Company Number: DE-ROCHE-1025484

PATIENT
  Sex: Male
  Weight: 83 kg

DRUGS (8)
  1. BLINDED BI 201335 (HCV PROTEASE INHIBITOR) [Suspect]
     Indication: HEPATITIS C
     Route: 048
     Dates: start: 20110802
  2. PEGINTERFERON ALFA-2A [Suspect]
     Indication: HEPATITIS C
     Route: 058
     Dates: start: 20110802
  3. COPEGUS [Suspect]
     Indication: HEPATITIS C
     Route: 048
     Dates: start: 20110802
  4. TRAMADOL HCL [Concomitant]
     Indication: PAIN
     Dates: start: 20090101
  5. ACETAMINOPHEN [Concomitant]
     Indication: INFLUENZA
     Dates: start: 20110816
  6. METOCLOPRAMIDE [Concomitant]
     Indication: NAUSEA
     Dosage: MAX 3X20 DROPS
     Dates: start: 20110816
  7. ZOLPIDEM [Concomitant]
     Indication: INSOMNIA
     Dosage: MAXIMUM 1 TABLET PRN
     Dates: start: 20110830
  8. METOCLOPRAMIDE [Concomitant]
     Indication: INSOMNIA

REACTIONS (1)
  - PERIPHERAL ARTERIAL OCCLUSIVE DISEASE [None]
